FAERS Safety Report 7939203-8 (Version None)
Quarter: 2011Q4

REPORT INFORMATION
  Report Type: 
  Country: None (occurrence: None)
  Receive Date: 20111124
  Receipt Date: 20110923
  Transmission Date: 20120403
  Serious: Yes (Hospitalization, Other)
  Sender: FDA-Public Use
  Company Number: ES-ROCHE-250044

PATIENT
  Age: 67 Year
  Sex: Female

DRUGS (6)
  1. INOCAR [Interacting]
     Indication: MYOCARDIAL INFARCTION
     Route: 048
  2. GLYBURIDE [Interacting]
     Indication: DIABETES MELLITUS
     Route: 048
     Dates: start: 20000801, end: 20000912
  3. BISOPROLOL FUMARATE [Interacting]
     Indication: MYOCARDIAL INFARCTION
     Route: 048
  4. SIMVASTATIN [Interacting]
     Indication: MYOCARDIAL INFARCTION
     Route: 048
  5. TICLID [Suspect]
     Indication: MYOCARDIAL INFARCTION
     Route: 048
  6. ASPIRIN [Interacting]
     Indication: MYOCARDIAL INFARCTION
     Route: 048

REACTIONS (2)
  - HYPOGLYCAEMIA [None]
  - DRUG INTERACTION [None]
